FAERS Safety Report 10155005 (Version 2)
Quarter: 2014Q2

REPORT INFORMATION
  Report Type: Spontaneous
  Country: US (occurrence: US)
  Receive Date: 20140506
  Receipt Date: 20140506
  Transmission Date: 20141212
  Serious: No
  Sender: FDA-Public Use
  Company Number: US-ASTRAZENECA-2013SE69431

PATIENT
  Age: 35 Year
  Sex: Male
  Weight: 92.1 kg

DRUGS (4)
  1. OMEPRAZOLE [Suspect]
     Indication: DYSPEPSIA
     Route: 048
  2. OMEPRAZOLE [Suspect]
     Indication: GASTROOESOPHAGEAL REFLUX DISEASE
     Route: 048
  3. PRILOSEC OTC [Suspect]
     Indication: DYSPEPSIA
     Route: 048
  4. PRILOSEC OTC [Suspect]
     Indication: GASTROOESOPHAGEAL REFLUX DISEASE
     Route: 048

REACTIONS (20)
  - Gastrooesophageal reflux disease [Unknown]
  - Anxiety [Unknown]
  - Sleep disorder due to general medical condition, insomnia type [Unknown]
  - Weight decreased [Unknown]
  - Aphagia [Unknown]
  - Mood altered [Unknown]
  - Thirst [Unknown]
  - Ocular discomfort [Recovering/Resolving]
  - Heart rate decreased [Unknown]
  - Hypotension [Unknown]
  - Cough [Unknown]
  - Dry mouth [Unknown]
  - Dyspepsia [Unknown]
  - Depression [Unknown]
  - Abdominal discomfort [Unknown]
  - Anger [Unknown]
  - Nausea [Unknown]
  - Fatigue [Unknown]
  - Vision blurred [Unknown]
  - Drug ineffective [Unknown]
